FAERS Safety Report 4490011-2 (Version None)
Quarter: 2004Q4

REPORT INFORMATION
  Report Type: 
  Country: None (occurrence: None)
  Receive Date: 20041028
  Receipt Date: 20041025
  Transmission Date: 20050328
  Serious: Yes (Death, Hospitalization)
  Sender: FDA-Public Use
  Company Number: THQ2004A00797

PATIENT
  Age: 54 Year
  Sex: Male

DRUGS (1)
  1. LANSOPRAZOLE [Suspect]
     Indication: GASTRIC DISORDER
     Dosage: 15 MG PER ORAL
     Route: 048
     Dates: start: 20020103, end: 20030411

REACTIONS (8)
  - HALLUCINATION [None]
  - HEPATIC CONGESTION [None]
  - HEPATIC STEATOSIS [None]
  - INJURY ASPHYXIATION [None]
  - MALAISE [None]
  - PULMONARY CONGESTION [None]
  - REFUSAL OF TREATMENT BY PATIENT [None]
  - SPLEEN CONGESTION [None]
